FAERS Safety Report 23512704 (Version 1)
Quarter: 2024Q1

REPORT INFORMATION
  Report Type: Spontaneous
  Country: US (occurrence: US)
  Receive Date: 20240212
  Receipt Date: 20240212
  Transmission Date: 20240409
  Serious: No
  Sender: FDA-Public Use
  Company Number: US-OTTER-US-2023AST000480

PATIENT
  Sex: Female

DRUGS (2)
  1. SYMPAZAN [Suspect]
     Active Substance: CLOBAZAM
     Indication: Epilepsy
     Dosage: 15MG BID
     Route: 048
     Dates: start: 202303, end: 2023
  2. SYMPAZAN [Suspect]
     Active Substance: CLOBAZAM
     Dosage: 15MG BID
     Route: 048
     Dates: start: 2023

REACTIONS (3)
  - Tongue disorder [Unknown]
  - Product quality issue [Unknown]
  - Product solubility abnormal [Unknown]

NARRATIVE: CASE EVENT DATE: 20230101
